FAERS Safety Report 19833472 (Version 1)
Quarter: 2021Q3

REPORT INFORMATION
  Report Type: Spontaneous
  Country: US (occurrence: US)
  Receive Date: 20210915
  Receipt Date: 20210915
  Transmission Date: 20211014
  Serious: Yes (Life-Threatening, Hospitalization)
  Sender: FDA-Public Use
  Company Number: US-MYLANLABS-2021M1062260

PATIENT
  Age: 6 Year
  Sex: Male

DRUGS (6)
  1. ANAKINRA [Suspect]
     Active Substance: ANAKINRA
     Indication: FEBRILE INFECTION-RELATED EPILEPSY SYNDROME
     Dosage: 20 MILLIGRAM/KILOGRAM, QD, TITRATED TO 20 MG/KG/DAY
     Route: 065
  2. KETAMINE [Suspect]
     Active Substance: KETAMINE
     Dosage: 6 MILLIGRAM/KILOGRAM, QH
     Route: 065
  3. METHYLPREDNISOLONE. [Suspect]
     Active Substance: METHYLPREDNISOLONE
     Indication: FEBRILE INFECTION-RELATED EPILEPSY SYNDROME
     Dosage: 30 MILLIGRAM/KILOGRAM, QD, FOR 5 DAYS
     Route: 042
  4. MIDAZOLAM. [Suspect]
     Active Substance: MIDAZOLAM
     Indication: FEBRILE INFECTION-RELATED EPILEPSY SYNDROME
     Dosage: 2.9 MILLIGRAM/KILOGRAM, QH
     Route: 065
  5. KETAMINE [Suspect]
     Active Substance: KETAMINE
     Indication: FEBRILE INFECTION-RELATED EPILEPSY SYNDROME
     Dosage: 100 MICROGRAM/KILOGRAM, QMINUTE
     Route: 065
  6. PENTOBARBITAL. [Suspect]
     Active Substance: PENTOBARBITAL
     Indication: FEBRILE INFECTION-RELATED EPILEPSY SYNDROME
     Dosage: 6 MILLIGRAM/KILOGRAM, QH
     Route: 065

REACTIONS (1)
  - Drug ineffective [Unknown]
